FAERS Safety Report 8280981-9 (Version None)
Quarter: 2012Q2

REPORT INFORMATION
  Report Type: 
  Country: None (occurrence: None)
  Receive Date: 20120412
  Receipt Date: 20120328
  Transmission Date: 20120825
  Serious: Yes (Hospitalization)
  Sender: FDA-Public Use
  Company Number: CA-BAXTER-2012BAX000431

PATIENT
  Sex: Male

DRUGS (3)
  1. BICARBONATE CONCENTRATION D17000 [Suspect]
     Route: 042
  2. 0.9% SODIUM CHLORIDE INJECTION [Suspect]
     Route: 042
  3. ACID CONCENTRATE D12265 [Suspect]
     Route: 042

REACTIONS (1)
  - VASCULAR RUPTURE [None]
